FAERS Safety Report 19484285 (Version 4)
Quarter: 2025Q3

REPORT INFORMATION
  Report Type: Spontaneous
  Country: GB (occurrence: GB)
  Receive Date: 20210702
  Receipt Date: 20250731
  Transmission Date: 20251021
  Serious: Yes (Hospitalization)
  Sender: CELLTRION
  Company Number: GB-CELLTRION INC.-2021GB008823

PATIENT

DRUGS (3)
  1. INFLIXIMAB [Suspect]
     Active Substance: INFLIXIMAB
     Indication: Rheumatoid arthritis
     Dosage: 120 MILLIGRAM, EVERY 2 WEEKS
     Route: 058
     Dates: start: 20200510
  2. INFLIXIMAB [Suspect]
     Active Substance: INFLIXIMAB
     Route: 058
     Dates: start: 20201115
  3. METHOTREXATE [Concomitant]
     Active Substance: METHOTREXATE
     Dates: start: 20020515

REACTIONS (4)
  - Fall [Recovered/Resolved with Sequelae]
  - Femur fracture [Recovered/Resolved with Sequelae]
  - Shoulder fracture [Recovered/Resolved with Sequelae]
  - Postoperative wound infection [Recovered/Resolved with Sequelae]

NARRATIVE: CASE EVENT DATE: 20210609
